FAERS Safety Report 5305000-5 (Version None)
Quarter: 2007Q2

REPORT INFORMATION
  Report Type: 
  Country: None (occurrence: None)
  Receive Date: 20070416
  Receipt Date: 20070330
  Transmission Date: 20071010
  Serious: Yes (Other)
  Sender: FDA-Public Use
  Company Number: 012120

PATIENT
  Age: 42 Year
  Sex: Female
  Weight: 71.2 kg

DRUGS (2)
  1. ESTRADIOL [Suspect]
     Indication: HORMONE REPLACEMENT THERAPY
     Dosage: 1 TABLET, QD, ORAL
     Route: 048
     Dates: start: 20021101
  2. HYDROCODONE (HYDROCODONE) [Concomitant]

REACTIONS (15)
  - CLAUSTROPHOBIA [None]
  - COLD SWEAT [None]
  - CRYING [None]
  - DRUG INEFFECTIVE [None]
  - FEELING HOT [None]
  - HEART RATE INCREASED [None]
  - HOT FLUSH [None]
  - HYPERVENTILATION [None]
  - INTERVERTEBRAL DISC DEGENERATION [None]
  - MIGRAINE [None]
  - NERVOUSNESS [None]
  - PAIN IN EXTREMITY [None]
  - PANIC ATTACK [None]
  - PARAESTHESIA [None]
  - SPINAL OSTEOARTHRITIS [None]
